FAERS Safety Report 6051474-4 (Version None)
Quarter: 2009Q1

REPORT INFORMATION
  Report Type: 
  Country: None (occurrence: None)
  Receive Date: 20090126
  Receipt Date: 20090121
  Transmission Date: 20090719
  Serious: Yes (Hospitalization)
  Sender: FDA-Public Use
  Company Number: A0758155A

PATIENT
  Age: 59 Year
  Sex: Male
  Weight: 104.5 kg

DRUGS (5)
  1. AVANDIA [Suspect]
     Dosage: 8MG PER DAY
     Route: 048
     Dates: start: 20000101, end: 20070501
  2. ACTOS [Concomitant]
  3. GLYSET [Concomitant]
  4. LOPRESSOR [Concomitant]
  5. CELEBREX [Concomitant]

REACTIONS (2)
  - ANGINA PECTORIS [None]
  - MYOCARDIAL INFARCTION [None]
